FAERS Safety Report 6993243-4 (Version None)
Quarter: 2010Q3

REPORT INFORMATION
  Report Type: 
  Country: None (occurrence: None)
  Receive Date: 20100917
  Receipt Date: 20100701
  Transmission Date: 20110219
  Serious: Yes (Other)
  Sender: FDA-Public Use
  Company Number: US-ASTRAZENECA-2007UW07733

PATIENT
  Age: 11062 Day
  Sex: Female
  Weight: 59 kg

DRUGS (31)
  1. SEROQUEL [Suspect]
     Indication: INSOMNIA
     Dosage: 75-600 MG
     Route: 048
     Dates: start: 20020723
  2. SEROQUEL [Suspect]
     Route: 048
     Dates: start: 20030101, end: 20051201
  3. SEROQUEL [Suspect]
     Dosage: 25-500 MG
     Route: 048
     Dates: start: 20020723, end: 20051120
  4. SEROQUEL [Suspect]
     Dosage: 200-500 MG
     Route: 048
     Dates: start: 20030121, end: 20060608
  5. ABILIFY [Concomitant]
     Route: 065
  6. EFFEXOR [Concomitant]
     Route: 065
  7. LITHIUM CARBONATE [Concomitant]
     Route: 065
  8. CLONAZEPAM [Concomitant]
     Route: 065
  9. NEURONTIN [Concomitant]
     Route: 048
  10. NEURONTIN [Concomitant]
     Dosage: 600 MA - 1800 MG
     Route: 048
  11. ELAVIL [Concomitant]
     Dosage: 100- 200 MG
     Route: 048
  12. XANAX [Concomitant]
     Dosage: 1 MG DISPENSED
     Route: 065
  13. VENTOLIN [Concomitant]
     Dosage: 2 INHALATIONS FOUR TIMES A DAY
     Route: 048
  14. FLOVENT [Concomitant]
     Dosage: 1 INHALATION TWO TIMES A DAY
     Route: 048
  15. GLUCOPHAGE [Concomitant]
     Dosage: 500-1500 MG
     Route: 048
  16. METOCLOPRAMIDE [Concomitant]
     Dosage: 10 MG FOUR TIMES A DAY AS NEEDED
     Route: 048
  17. SINGULAIR [Concomitant]
     Route: 048
  18. ATENOLOL [Concomitant]
     Dosage: 25-50 MG
     Route: 048
  19. BENADRYL [Concomitant]
     Dosage: 50 MG Q 8 PM
     Route: 048
  20. NAPROXEN [Concomitant]
     Dosage: 500 MG B.I. D PRN
     Route: 048
  21. AVANDIA [Concomitant]
     Route: 048
  22. WELLBUTRIN [Concomitant]
     Dosage: XL 150 MG Q AM
     Route: 048
  23. WELLBUTRIN [Concomitant]
     Dosage: SR 100 MG BID
     Route: 048
  24. GEODON [Concomitant]
     Dosage: 40-160 MG
     Route: 048
     Dates: start: 20040101
  25. DOCUSATE SODIUM [Concomitant]
     Route: 065
  26. BUTALBITAL COMPOUND [Concomitant]
     Route: 065
  27. MACROBID [Concomitant]
     Route: 065
  28. OXYCODONE HCL AND ACETAMINOPHEN [Concomitant]
     Route: 065
  29. FERROUS SULFATE [Concomitant]
     Route: 048
  30. LORAZEPAM [Concomitant]
     Route: 065
  31. CELEBREX [Concomitant]
     Route: 065

REACTIONS (20)
  - BACK PAIN [None]
  - BLOOD GLUCOSE INCREASED [None]
  - DECREASED APPETITE [None]
  - DIABETES MELLITUS [None]
  - DIARRHOEA [None]
  - DIZZINESS [None]
  - DYSPNOEA [None]
  - EAR PAIN [None]
  - ECZEMA [None]
  - FATIGUE [None]
  - HYPERGLYCAEMIA [None]
  - HYPERTHYROIDISM [None]
  - OEDEMA PERIPHERAL [None]
  - PARANOIA [None]
  - SCAR [None]
  - SUICIDAL IDEATION [None]
  - TOOTH ABSCESS [None]
  - TREMOR [None]
  - TYPE 2 DIABETES MELLITUS [None]
  - URTICARIA [None]
